FAERS Safety Report 8860375 (Version 1)
Quarter: 2012Q4

REPORT INFORMATION
  Report Type: Report from Study
  Country: CA (occurrence: CA)
  Receive Date: 20121025
  Receipt Date: 20121025
  Transmission Date: 20130627
  Serious: Yes (Hospitalization, Other)
  Sender: FDA-Public Use
  Company Number: CA-JNJFOC-20121007638

PATIENT
  Age: 38 None
  Sex: Male
  Weight: 65.77 kg

DRUGS (3)
  1. REMICADE [Suspect]
     Indication: COLITIS ULCERATIVE
     Dosage: loading dose 1
     Route: 042
     Dates: start: 20120928
  2. REMICADE [Suspect]
     Indication: COLITIS ULCERATIVE
     Dosage: loading dose 2
     Route: 042
     Dates: start: 20121012
  3. PREDNISONE [Concomitant]
     Route: 065
     Dates: start: 20120920

REACTIONS (5)
  - Drug ineffective [Unknown]
  - Weight decreased [Unknown]
  - Infusion related reaction [Recovered/Resolved]
  - Dyspnoea [Recovered/Resolved]
  - Flushing [Recovered/Resolved]
